FAERS Safety Report 21698202 (Version 2)
Quarter: 2023Q2

REPORT INFORMATION
  Report Type: Report from Study
  Country: US (occurrence: US)
  Receive Date: 20221208
  Receipt Date: 20230614
  Transmission Date: 20230721
  Serious: Yes (Other)
  Sender: FDA-Public Use
  Company Number: US-ABBVIE-4228006

PATIENT
  Sex: Male

DRUGS (2)
  1. HUMIRA [Suspect]
     Active Substance: ADALIMUMAB
     Indication: Colitis ulcerative
     Route: 058
  2. HUMIRA [Suspect]
     Active Substance: ADALIMUMAB
     Route: 058
     Dates: start: 20140707

REACTIONS (4)
  - Blindness unilateral [Unknown]
  - Corneal abrasion [Not Recovered/Not Resolved]
  - Eye infection fungal [Unknown]
  - Visual impairment [Unknown]

NARRATIVE: CASE EVENT DATE: 20180101
